FAERS Safety Report 9511246 (Version 1)
Quarter: 2013Q1

REPORT INFORMATION
  Report Type: Spontaneous
  Country: US (occurrence: None)
  Receive Date: 20130305
  Receipt Date: 20130305
  Transmission Date: 20140127
  Serious: Yes (Other)
  Sender: FDA-Public Use
  Company Number: 163-21880-12120923

PATIENT
  Age: 50 Year
  Sex: Female

DRUGS (1)
  1. REVLIMID (LENALIDOMIDE) (CAPSULES) [Suspect]
     Indication: PLASMA CELL MYELOMA
     Route: 048
     Dates: start: 20120926

REACTIONS (4)
  - Salivary hypersecretion [None]
  - Oedema peripheral [None]
  - Increased upper airway secretion [None]
  - Rhinorrhoea [None]
